FAERS Safety Report 9676007 (Version 2)
Quarter: 2013Q4

REPORT INFORMATION
  Report Type: Spontaneous
  Country: FR (occurrence: FR)
  Receive Date: 20131107
  Receipt Date: 20131118
  Transmission Date: 20140711
  Serious: Yes (Hospitalization)
  Sender: FDA-Public Use
  Company Number: PHHY2013FR123561

PATIENT
  Age: 48 Year
  Sex: Female

DRUGS (22)
  1. GLIVEC [Suspect]
     Indication: CHRONIC MYELOID LEUKAEMIA
     Dosage: 400 MG, QD
     Route: 048
     Dates: start: 2007, end: 2009
  2. GLIVEC [Suspect]
     Dosage: 600 MG, QD
     Route: 048
     Dates: start: 2009, end: 2010
  3. TASIGNA [Suspect]
     Indication: CHRONIC MYELOID LEUKAEMIA
     Dosage: 400 MG, QD
     Route: 048
     Dates: start: 201006
  4. TASIGNA [Suspect]
     Dosage: 800 MG, QD
     Route: 048
     Dates: end: 201109
  5. NEORAL [Interacting]
     Dosage: 75 MG, BID
     Route: 048
     Dates: start: 20130321, end: 20130812
  6. NEORAL [Interacting]
     Dosage: 50 MG, BID
     Route: 048
     Dates: start: 20130812, end: 20130829
  7. BUSILVEX [Suspect]
     Indication: CHRONIC MYELOID LEUKAEMIA TRANSFORMATION
     Dosage: UNK UKN, UNK
     Route: 042
     Dates: start: 20130313, end: 201303
  8. ENDOXAN [Suspect]
     Indication: CHRONIC MYELOID LEUKAEMIA TRANSFORMATION
     Dosage: UNK UKN, UNK
     Route: 042
     Dates: start: 20130313, end: 201303
  9. SPRYCEL//DASATINIB [Suspect]
     Indication: CHRONIC MYELOID LEUKAEMIA
     Dosage: 50 MG, QD
     Route: 048
     Dates: start: 201207, end: 201208
  10. CERUBIDINE [Suspect]
     Indication: CHRONIC MYELOID LEUKAEMIA TRANSFORMATION
     Dosage: UNK UKN, UNK
     Route: 042
     Dates: start: 201210, end: 201210
  11. ZAVEDOS [Suspect]
     Indication: CHRONIC MYELOID LEUKAEMIA TRANSFORMATION
     Dosage: UNK UKN, UNK
     Route: 042
     Dates: start: 201212, end: 201212
  12. ARACYTINE [Suspect]
     Indication: CHRONIC MYELOID LEUKAEMIA TRANSFORMATION
     Dosage: UNK UKN, UNK
     Route: 042
     Dates: start: 201210, end: 201210
  13. ARACYTINE [Suspect]
     Dosage: UNK UKN, UNK
     Route: 042
     Dates: start: 201212, end: 201212
  14. NOXAFIL [Interacting]
     Dosage: 200 MG, TID
     Route: 048
     Dates: start: 201304, end: 201308
  15. ROVAMYCINE [Concomitant]
     Dosage: 3 MIU, BID
     Route: 048
     Dates: start: 201304
  16. ZELITREX [Concomitant]
     Dosage: 500 MG, BID
     Route: 048
     Dates: start: 201304
  17. WELLVONE [Concomitant]
     Dosage: 700 MG, BID
     Route: 048
  18. MOPRAL [Concomitant]
     Dosage: 20 MG, QD
     Route: 048
     Dates: start: 201303
  19. LYRICA [Concomitant]
     Dosage: 25 MG, BID
     Route: 048
  20. SEROPLEX [Concomitant]
     Dosage: 1 DF, QD
     Route: 048
  21. LEXOMIL [Concomitant]
     Dosage: 0.5 DF, QD
     Route: 048
  22. TRIATEC [Concomitant]
     Dosage: 1.5 MG, QD
     Dates: start: 20121228

REACTIONS (5)
  - Acute coronary syndrome [Recovering/Resolving]
  - Myocardial infarction [Recovering/Resolving]
  - Cardiac failure [Recovering/Resolving]
  - Ejection fraction decreased [Recovering/Resolving]
  - Drug interaction [Unknown]
